FAERS Safety Report 8448956-4 (Version None)
Quarter: 2012Q2

REPORT INFORMATION
  Report Type: 
  Country: None (occurrence: None)
  Receive Date: 20120619
  Receipt Date: 20120612
  Transmission Date: 20120825
  Serious: Yes (Other)
  Sender: FDA-Public Use
  Company Number: DE-GLAXOSMITHKLINE-D0075944A

PATIENT
  Sex: Female

DRUGS (1)
  1. NARATRIPTAN [Suspect]
     Dosage: 2.5MG UNKNOWN
     Route: 048

REACTIONS (2)
  - DRUG DEPENDENCE [None]
  - INTENTIONAL DRUG MISUSE [None]
